FAERS Safety Report 4363066-3 (Version None)
Quarter: 2004Q2

REPORT INFORMATION
  Report Type: 
  Country: None (occurrence: None)
  Receive Date: 20040518
  Receipt Date: 20040503
  Transmission Date: 20050107
  Serious: Yes (Other)
  Sender: FDA-Public Use
  Company Number: NL-JNJFOC-20040501549

PATIENT
  Age: 7 Week
  Sex: Female

DRUGS (1)
  1. DAKTARIN (MICONAZOLE) GEL [Suspect]
     Indication: CANDIDIASIS
     Dosage: ORAL
     Route: 048

REACTIONS (2)
  - DYSPHAGIA [None]
  - RESPIRATORY DISORDER [None]
